FAERS Safety Report 23451003 (Version 1)
Quarter: 2024Q1

REPORT INFORMATION
  Report Type: Spontaneous
  Country: US (occurrence: US)
  Receive Date: 20240129
  Receipt Date: 20240129
  Transmission Date: 20240410
  Serious: No
  Sender: FDA-Public Use
  Company Number: US-BRISTOL-MYERS SQUIBB COMPANY-2024-014178

PATIENT
  Age: 36 Year
  Sex: Female
  Weight: 127.01 kg

DRUGS (1)
  1. ZEPOSIA [Suspect]
     Active Substance: OZANIMOD HYDROCHLORIDE
     Indication: Multiple sclerosis
     Route: 048
     Dates: start: 20240111

REACTIONS (2)
  - Hot flush [Not Recovered/Not Resolved]
  - Dry mouth [Not Recovered/Not Resolved]
